FAERS Safety Report 5870261-0 (Version None)
Quarter: 2008Q3

REPORT INFORMATION
  Report Type: 
  Country: None (occurrence: None)
  Receive Date: 20080904
  Receipt Date: 20070808
  Transmission Date: 20090109
  Serious: No
  Sender: FDA-Public Use
  Company Number: US-BRISTOL-MYERS SQUIBB COMPANY-13871496

PATIENT
  Age: 70 Year
  Sex: Male
  Weight: 103 kg

DRUGS (16)
  1. DEFINITY [Suspect]
     Indication: ECHOCARDIOGRAM
     Route: 048
     Dates: start: 20070808, end: 20070808
  2. COUMADIN [Concomitant]
  3. PLAVIX [Concomitant]
  4. LISINOPRIL [Concomitant]
  5. LIPITOR [Concomitant]
  6. AVODART [Concomitant]
  7. FLOMAX [Concomitant]
  8. CHROMAGEN [Concomitant]
  9. TRICOR [Concomitant]
  10. METOPROLOL TARTRATE [Concomitant]
  11. METFORMIN HCL [Concomitant]
  12. ASPIRIN [Concomitant]
  13. FISH OIL [Concomitant]
  14. IMDUR [Concomitant]
  15. LASIX [Concomitant]
  16. CHOLESTYRAMINE [Concomitant]

REACTIONS (2)
  - BACK PAIN [None]
  - CHEST PAIN [None]
